FAERS Safety Report 9517935 (Version 1)
Quarter: 2013Q3

REPORT INFORMATION
  Report Type: Spontaneous
  Country: US (occurrence: None)
  Receive Date: 20130910
  Receipt Date: 20130910
  Transmission Date: 20140515
  Serious: Yes (Other)
  Sender: FDA-Public Use
  Company Number: None

PATIENT
  Age: 65 Year
  Sex: Female
  Weight: 68.04 kg

DRUGS (1)
  1. HYDROCODONE [Suspect]
     Indication: ARTHRALGIA
     Dosage: 1 PILL
     Route: 048
     Dates: start: 20071226, end: 20071229

REACTIONS (2)
  - Back pain [None]
  - Liver disorder [None]
